FAERS Safety Report 15207411 (Version 1)
Quarter: 2018Q3

REPORT INFORMATION
  Report Type: Spontaneous
  Country: US (occurrence: US)
  Receive Date: 20180628
  Receipt Date: 20180628
  Transmission Date: 20181010
  Serious: Yes (Death)
  Sender: FDA-Public Use
  Company Number: None

PATIENT
  Age: 61 Year
  Sex: Female
  Weight: 82.4 kg

DRUGS (2)
  1. TRASTUZUMAB. [Concomitant]
     Active Substance: TRASTUZUMAB
     Dates: start: 20180111, end: 20180125
  2. OSIMERTINIB. [Suspect]
     Active Substance: OSIMERTINIB
     Indication: LUNG ADENOCARCINOMA
     Route: 048
     Dates: start: 20180105, end: 20180121

REACTIONS (7)
  - Pneumonia [None]
  - Pneumonitis [None]
  - Respiratory disorder [None]
  - Acute respiratory distress syndrome [None]
  - Tachycardia [None]
  - Pulmonary embolism [None]
  - Pyrexia [None]

NARRATIVE: CASE EVENT DATE: 20180122
